FAERS Safety Report 12706172 (Version 6)
Quarter: 2018Q1

REPORT INFORMATION
  Report Type: Spontaneous
  Country: US (occurrence: US)
  Receive Date: 20160901
  Receipt Date: 20180329
  Transmission Date: 20180508
  Serious: Yes (Other)
  Sender: FDA-Public Use
  Company Number: US-JAZZ-2016-US-008296

PATIENT
  Sex: Male

DRUGS (44)
  1. XYREM [Suspect]
     Active Substance: SODIUM OXYBATE
     Dosage: 3 G, BID
     Route: 048
     Dates: start: 201312, end: 2016
  2. PROAIR HFA [Concomitant]
     Active Substance: ALBUTEROL SULFATE
  3. VITAMIN B COMPLEX [Concomitant]
     Active Substance: CYANOCOBALAMIN\DEXPANTHENOL\NIACINAMIDE\PYRIDOXINE HYDROCHLORIDE\RIBOFLAVIN 5^-PHOSPHATE SODIUM\THIAMINE HYDROCHLORIDE\VITAMIN B COMPLEX
  4. VITAMIN D [Concomitant]
     Active Substance: CHOLECALCIFEROL
  5. PREDNISONE. [Concomitant]
     Active Substance: PREDNISONE
  6. XYREM [Suspect]
     Active Substance: SODIUM OXYBATE
     Dosage: 2.25 G, UNK
     Route: 048
     Dates: start: 2017, end: 2017
  7. CODEINE SULFATE. [Concomitant]
     Active Substance: CODEINE SULFATE
  8. FLOMAX [Concomitant]
     Active Substance: TAMSULOSIN HYDROCHLORIDE
  9. DEXAMETHASONE SODIUM PHOSPHATE. [Concomitant]
     Active Substance: DEXAMETHASONE SODIUM PHOSPHATE
  10. PROBIOTIC [Concomitant]
     Active Substance: PROBIOTICS NOS
  11. XYREM [Suspect]
     Active Substance: SODIUM OXYBATE
     Indication: CATAPLEXY
     Dosage: DOSE ADJUSTMENTS
     Route: 048
     Dates: start: 201010, end: 201312
  12. DIOVAN HCT [Concomitant]
     Active Substance: HYDROCHLOROTHIAZIDE\VALSARTAN
  13. FLUTICASONE. [Concomitant]
     Active Substance: FLUTICASONE
  14. PROVIGIL [Concomitant]
     Active Substance: MODAFINIL
  15. ROPINIROLE. [Concomitant]
     Active Substance: ROPINIROLE
  16. NUEDEXTA [Concomitant]
     Active Substance: DEXTROMETHORPHAN HYDROBROMIDE\QUINIDINE SULFATE
  17. XYREM [Suspect]
     Active Substance: SODIUM OXYBATE
     Indication: NARCOLEPSY
     Dosage: 2.25G, BID
     Route: 048
     Dates: start: 201005, end: 201010
  18. XYREM [Suspect]
     Active Substance: SODIUM OXYBATE
     Dosage: 3 G, BID
     Route: 048
     Dates: start: 2017
  19. GABAPENTIN. [Concomitant]
     Active Substance: GABAPENTIN
  20. LEXAPRO [Concomitant]
     Active Substance: ESCITALOPRAM OXALATE
  21. MECLIZINE HCL [Concomitant]
     Active Substance: MECLIZINE HYDROCHLORIDE
  22. MULTIVITAMINS [Concomitant]
     Active Substance: VITAMINS
  23. OMEGA 3-6-9 [Concomitant]
     Active Substance: FISH OIL
  24. TAMBOCOR [Concomitant]
     Active Substance: FLECAINIDE ACETATE
  25. KEPPRA [Concomitant]
     Active Substance: LEVETIRACETAM
  26. TOVIAZ [Concomitant]
     Active Substance: FESOTERODINE FUMARATE
  27. FLECAINIDE ACETATE. [Concomitant]
     Active Substance: FLECAINIDE ACETATE
  28. SINGULAIR [Concomitant]
     Active Substance: MONTELUKAST SODIUM
  29. VITAMIN C [Concomitant]
     Active Substance: ASCORBIC ACID
  30. FLUTICASONE PROPIONATE. [Concomitant]
     Active Substance: FLUTICASONE PROPIONATE
  31. MUCINEX [Concomitant]
     Active Substance: GUAIFENESIN
  32. TOPROL XL [Concomitant]
     Active Substance: METOPROLOL SUCCINATE
  33. TRIAMCINOLONE [Concomitant]
     Active Substance: TRIAMCINOLONE
  34. METHYLPREDNISOLONE. [Concomitant]
     Active Substance: METHYLPREDNISOLONE
  35. DEXTROMETHORPHAN [Concomitant]
     Active Substance: DEXTROMETHORPHAN
  36. VICKS [Concomitant]
  37. VOLTAREN [Concomitant]
     Active Substance: DICLOFENAC SODIUM
  38. URIBEL [Concomitant]
     Active Substance: HYOSCYAMINE SULFATE\METHENAMINE\METHYLENE BLUE\PHENYL SALICYLATE\SODIUM PHOSPHATE, MONOBASIC, MONOHYDRATE
  39. CLINDAMYCIN HYDROCHLORIDE. [Concomitant]
     Active Substance: CLINDAMYCIN HYDROCHLORIDE
  40. BENAZEPRIL HCL [Concomitant]
     Active Substance: BENAZEPRIL HYDROCHLORIDE
  41. CLARITIN [Concomitant]
     Active Substance: LORATADINE
  42. HYDROCHLOROTHIAZIDE. [Concomitant]
     Active Substance: HYDROCHLOROTHIAZIDE
  43. POTASSIUM CITRATE. [Concomitant]
     Active Substance: POTASSIUM CITRATE
  44. LEVOFLOXACIN. [Concomitant]
     Active Substance: LEVOFLOXACIN

REACTIONS (5)
  - Bronchitis [Unknown]
  - Asthma [Unknown]
  - Asthenia [Unknown]
  - Pneumonia [Recovered/Resolved]
  - Fatigue [Unknown]
